FAERS Safety Report 6490801-0 (Version None)
Quarter: 2009Q4

REPORT INFORMATION
  Report Type: 
  Country: None (occurrence: None)
  Receive Date: 20091211
  Receipt Date: 20091204
  Transmission Date: 20100525
  Serious: Yes (Hospitalization, Other)
  Sender: FDA-Public Use
  Company Number: JP-JNJFOC-20091203157

PATIENT
  Age: 4 Decade
  Sex: Female

DRUGS (1)
  1. CRAVIT [Suspect]
     Indication: CYSTITIS
     Route: 048

REACTIONS (4)
  - DYSPNOEA [None]
  - FACE OEDEMA [None]
  - GENERALISED ERYTHEMA [None]
  - PHARYNGEAL OEDEMA [None]
